FAERS Safety Report 12916404 (Version 4)
Quarter: 2017Q1

REPORT INFORMATION
  Report Type: Spontaneous
  Country: US (occurrence: US)
  Receive Date: 20161107
  Receipt Date: 20170306
  Transmission Date: 20170428
  Serious: Yes (Hospitalization)
  Sender: FDA-Public Use
  Company Number: US-BIOGEN-2016BI00313202

PATIENT
  Age: 72 Year
  Sex: Female
  Weight: 47 kg

DRUGS (5)
  1. AVONEX [Suspect]
     Active Substance: INTERFERON BETA-1A
     Indication: MULTIPLE SCLEROSIS
     Route: 030
     Dates: start: 1996
  2. AMPYRA [Concomitant]
     Active Substance: DALFAMPRIDINE
     Indication: GAIT DISTURBANCE
     Route: 048
  3. AMPYRA [Concomitant]
     Active Substance: DALFAMPRIDINE
     Dosage: TO CONSERVE SUPPLY AND STOPPED FOR 10 DAYS DUE TO PAPERWORK.
     Route: 048
     Dates: end: 2016
  4. OXYBUTYNIN CHLORIDE. [Concomitant]
     Active Substance: OXYBUTYNIN CHLORIDE
     Indication: PRODUCT USED FOR UNKNOWN INDICATION
     Route: 065
  5. FORTEO [Concomitant]
     Active Substance: TERIPARATIDE
     Indication: PRODUCT USED FOR UNKNOWN INDICATION
     Route: 065
     Dates: start: 2014, end: 201611

REACTIONS (5)
  - Loss of control of legs [Recovered/Resolved]
  - Muscle spasms [Not Recovered/Not Resolved]
  - Initial insomnia [Recovered/Resolved]
  - Fall [Recovered/Resolved]
  - Multiple sclerosis [Not Recovered/Not Resolved]

NARRATIVE: CASE EVENT DATE: 201609
